FAERS Safety Report 17206425 (Version 10)
Quarter: 2020Q3

REPORT INFORMATION
  Report Type: Report from Study
  Country: US (occurrence: US)
  Receive Date: 20191227
  Receipt Date: 20200917
  Transmission Date: 20201102
  Serious: No
  Sender: FDA-Public Use
  Company Number: US-DSJP-DSU-2019-149083

PATIENT

DRUGS (5)
  1. PEXIDARTINIB [Suspect]
     Active Substance: PEXIDARTINIB
     Indication: SYNOVITIS
     Dosage: 600 MG, BID (200MG QAM AND 400MG QPM)
     Route: 048
     Dates: start: 20191129
  2. PEXIDARTINIB [Suspect]
     Active Substance: PEXIDARTINIB
     Dosage: 6200MG QAM AND 400MG QPM)
     Route: 048
     Dates: start: 20191129
  3. PEXIDARTINIB [Suspect]
     Active Substance: PEXIDARTINIB
     Indication: NEOPLASM SKIN
     Dosage: 200 MG, BID
     Route: 048
     Dates: start: 20191209
  4. PEXIDARTINIB [Suspect]
     Active Substance: PEXIDARTINIB
     Indication: BONE NEOPLASM
     Dosage: 400 MG, BID
     Route: 048
     Dates: start: 20191129, end: 20191202
  5. PEXIDARTINIB [Suspect]
     Active Substance: PEXIDARTINIB
     Indication: SOFT TISSUE NEOPLASM
     Dosage: 400 MG, BID
     Route: 048
     Dates: start: 20191209

REACTIONS (26)
  - Rales [Unknown]
  - Cyst [Not Recovered/Not Resolved]
  - Burning sensation [Not Recovered/Not Resolved]
  - Hepatic enzyme increased [Not Recovered/Not Resolved]
  - Muscle twitching [Recovering/Resolving]
  - Weight decreased [Not Recovered/Not Resolved]
  - Diarrhoea [Recovered/Resolved]
  - Chronic obstructive pulmonary disease [Unknown]
  - Taste disorder [Not Recovered/Not Resolved]
  - Pruritus [Recovering/Resolving]
  - Cholelithiasis [Not Recovered/Not Resolved]
  - Decreased appetite [Not Recovered/Not Resolved]
  - Off label use [Recovered/Resolved]
  - Fatigue [Not Recovered/Not Resolved]
  - Tumour invasion [Not Recovered/Not Resolved]
  - Joint instability [Not Recovered/Not Resolved]
  - Mood altered [Unknown]
  - Chills [Unknown]
  - Dysgeusia [Recovered/Resolved]
  - Swelling face [Unknown]
  - Pyrexia [Not Recovered/Not Resolved]
  - Micturition urgency [Not Recovered/Not Resolved]
  - Dyspnoea [Unknown]
  - Influenza [Recovering/Resolving]
  - Hair colour changes [Not Recovered/Not Resolved]
  - Eye swelling [Unknown]

NARRATIVE: CASE EVENT DATE: 2019
